FAERS Safety Report 10263796 (Version 1)
Quarter: 2014Q2

REPORT INFORMATION
  Report Type: Spontaneous
  Country: US (occurrence: US)
  Receive Date: 20140627
  Receipt Date: 20140627
  Transmission Date: 20141212
  Serious: No
  Sender: FDA-Public Use
  Company Number: US-AMGEN-USASP2014047089

PATIENT
  Age: 6 Year
  Sex: Female

DRUGS (3)
  1. ENBREL [Suspect]
     Indication: VASCULITIS
     Dosage: 25 MG, QWK
     Route: 065
     Dates: start: 20140425
  2. ENBREL [Suspect]
     Indication: INFLAMMATION
  3. METHOTREXATE [Concomitant]
     Dosage: UNK

REACTIONS (1)
  - Injection site pain [Not Recovered/Not Resolved]
